FAERS Safety Report 22149417 (Version 1)
Quarter: 2023Q1

REPORT INFORMATION
  Report Type: Spontaneous
  Country: JP (occurrence: JP)
  Receive Date: 20230329
  Receipt Date: 20230329
  Transmission Date: 20230418
  Serious: No
  Sender: FDA-Public Use
  Company Number: JP-UCBSA-2023010829

PATIENT
  Age: 61 Year
  Sex: Female

DRUGS (1)
  1. NEUPRO [Suspect]
     Active Substance: ROTIGOTINE
     Indication: Parkinson^s disease
     Dosage: 2.25 MILLIGRAM, ONCE DAILY (QD)
     Route: 062

REACTIONS (2)
  - Dermatitis contact [Unknown]
  - Product adhesion issue [Unknown]
